FAERS Safety Report 10077447 (Version 1)
Quarter: 2014Q2

REPORT INFORMATION
  Report Type: Spontaneous
  Country: US (occurrence: US)
  Receive Date: 20140414
  Receipt Date: 20140414
  Transmission Date: 20141212
  Serious: No
  Sender: FDA-Public Use
  Company Number: US-BANPHARM-20131525

PATIENT
  Age: 84 Year
  Sex: Male
  Weight: 61.22 kg

DRUGS (6)
  1. NAPROXEN SODIUM 220 MG [Suspect]
     Indication: MUSCULOSKELETAL PAIN
     Dosage: 220-440 MG, QD,
     Route: 048
     Dates: start: 20130618, end: 201306
  2. NAPROXEN SODIUM 220 MG [Suspect]
     Indication: MUSCULOSKELETAL PAIN
     Dosage: 220 MG, QD,
     Route: 048
     Dates: start: 20130715, end: 20130717
  3. MINERALS NOS [Concomitant]
  4. VITAMINS [Concomitant]
  5. ASPIRIN [Concomitant]
  6. ALLOPURINOL [Concomitant]

REACTIONS (2)
  - Influenza like illness [Recovered/Resolved]
  - Pruritus generalised [Not Recovered/Not Resolved]
